FAERS Safety Report 21173966 (Version 1)
Quarter: 2022Q3

REPORT INFORMATION
  Report Type: Spontaneous
  Country: GB (occurrence: GB)
  Receive Date: 20220804
  Receipt Date: 20220804
  Transmission Date: 20221027
  Serious: Yes (Disabling)
  Sender: FDA-Public Use
  Company Number: GB-NAPPMUNDI-GBR-2022-0100270

PATIENT
  Age: 65 Year
  Sex: Female

DRUGS (1)
  1. THEOPHYLLINE ANHYDROUS [Suspect]
     Active Substance: THEOPHYLLINE ANHYDROUS
     Indication: Asthma
     Dosage: PREVIOUSLY 150MG BD, NOW 300MG ONCE IN THE EVENING
     Route: 065

REACTIONS (1)
  - Migraine [Not Recovered/Not Resolved]
